FAERS Safety Report 12528702 (Version 4)
Quarter: 2017Q1

REPORT INFORMATION
  Report Type: Spontaneous
  Country: US (occurrence: US)
  Receive Date: 20160705
  Receipt Date: 20170202
  Transmission Date: 20170428
  Serious: Yes (Hospitalization)
  Sender: FDA-Public Use
  Company Number: US-BAYER-2016-125336

PATIENT
  Age: 91 Year
  Sex: Male

DRUGS (4)
  1. XOFIGO [Suspect]
     Active Substance: RADIUM RA-223 DICHLORIDE
     Indication: PROSTATE CANCER STAGE IV
     Dosage: UNK
     Route: 042
     Dates: start: 20160622, end: 20160622
  2. XGEVA [Concomitant]
     Active Substance: DENOSUMAB
     Indication: METASTASES TO BONE
     Dosage: UNK UNK, Q1MON
     Dates: start: 20130626, end: 20160928
  3. XOFIGO [Suspect]
     Active Substance: RADIUM RA-223 DICHLORIDE
     Indication: METASTASES TO BONE
     Dosage: 106.5 ?CI, EVERY 28 DAYS
     Route: 042
     Dates: start: 20160829
  4. TAXOTERE [Concomitant]
     Active Substance: DOCETAXEL
     Indication: METASTASES TO BONE
     Dosage: UNK, Q3WK
     Dates: start: 20160113, end: 20160413

REACTIONS (2)
  - Metastases to liver [None]
  - Oedema peripheral [Recovered/Resolved]
